FAERS Safety Report 7760890-1 (Version None)
Quarter: 2011Q3

REPORT INFORMATION
  Report Type: 
  Country: None (occurrence: None)
  Receive Date: 20110919
  Receipt Date: 20110914
  Transmission Date: 20111222
  Serious: Yes (Other)
  Sender: FDA-Public Use
  Company Number: AU-MERCK-1109USA00409

PATIENT
  Age: 9 Year
  Sex: Male

DRUGS (2)
  1. COUGH, COLD, AND FLU THERAPIES (UNSPECIFIED) [Concomitant]
     Route: 065
  2. SINGULAIR [Suspect]
     Route: 065
     Dates: start: 20110101, end: 20110801

REACTIONS (7)
  - SOCIAL AVOIDANT BEHAVIOUR [None]
  - MOOD ALTERED [None]
  - FEAR [None]
  - APPETITE DISORDER [None]
  - SUICIDAL IDEATION [None]
  - CRYING [None]
  - IRRITABILITY [None]
